FAERS Safety Report 6449010-3 (Version None)
Quarter: 2009Q4

REPORT INFORMATION
  Report Type: 
  Country: None (occurrence: None)
  Receive Date: 20091120
  Receipt Date: 20091120
  Transmission Date: 20100525
  Serious: Yes (Hospitalization)
  Sender: FDA-Public Use
  Company Number: B0555235A

PATIENT
  Age: 40 Year
  Sex: Male

DRUGS (6)
  1. CARVEDILOL [Suspect]
     Dosage: 6MG PER DAY
     Route: 048
  2. RAMIPRIL [Suspect]
     Dosage: 5MG PER DAY
     Route: 048
  3. ACTRAPID [Suspect]
     Indication: PANCREATOGENOUS DIABETES
     Route: 058
  4. ACETYLSALICYLIC ACID [Concomitant]
  5. OMEPRAZOLE [Concomitant]
  6. SIMVASTATIN [Concomitant]

REACTIONS (3)
  - HAEMATOCRIT DECREASED [None]
  - HAEMOGLOBIN DECREASED [None]
  - HYPOGLYCAEMIA [None]
